FAERS Safety Report 6385764-2 (Version None)
Quarter: 2009Q4

REPORT INFORMATION
  Report Type: 
  Country: None (occurrence: None)
  Receive Date: 20091002
  Receipt Date: 20080926
  Transmission Date: 20100525
  Serious: No
  Sender: FDA-Public Use
  Company Number: US-ASTRAZENECA-2008UW20647

PATIENT
  Age: 54 Year
  Sex: Female
  Weight: 65.8 kg

DRUGS (4)
  1. ARIMIDEX [Suspect]
     Indication: BREAST CANCER
     Route: 048
     Dates: start: 20080912
  2. TYLENOL W/ CODEINE NO. 4 [Concomitant]
  3. ALPRAZOLAM [Concomitant]
  4. NEXIUM [Concomitant]

REACTIONS (6)
  - ARTHRALGIA [None]
  - HEADACHE [None]
  - HIATUS HERNIA [None]
  - ILL-DEFINED DISORDER [None]
  - MYALGIA [None]
  - VULVOVAGINAL PRURITUS [None]
